FAERS Safety Report 17895074 (Version 1)
Quarter: 2020Q2

REPORT INFORMATION
  Report Type: Spontaneous
  Country: US (occurrence: US)
  Receive Date: 20200613
  Receipt Date: 20200613
  Transmission Date: 20200714
  Serious: No
  Sender: FDA-Public Use
  Company Number: None

PATIENT
  Age: 47 Year
  Sex: Male
  Weight: 72 kg

DRUGS (4)
  1. ZOLPIDEM TARTRATE ER 12.5 MG TAB LUPI [Suspect]
     Active Substance: ZOLPIDEM TARTRATE
     Indication: INITIAL INSOMNIA
     Dosage: ?          QUANTITY:1 TABLET(S);?
     Route: 048
     Dates: start: 20191001
  2. ZOLPIDEM TARTRATE ER 12.5 MG TAB LUPI [Suspect]
     Active Substance: ZOLPIDEM TARTRATE
     Indication: MIDDLE INSOMNIA
     Dosage: ?          QUANTITY:1 TABLET(S);?
     Route: 048
     Dates: start: 20191001
  3. TRUVADA [Concomitant]
     Active Substance: EMTRICITABINE\TENOFOVIR DISOPROXIL FUMARATE
  4. INTELENCE [Concomitant]
     Active Substance: ETRAVIRINE

REACTIONS (6)
  - Manufacturing process control procedure issue [None]
  - Drug ineffective [None]
  - Product substitution issue [None]
  - Product formulation issue [None]
  - Suspected product tampering [None]
  - Wrong technique in product usage process [None]

NARRATIVE: CASE EVENT DATE: 20200608
